FAERS Safety Report 9099924 (Version 1)
Quarter: 2013Q1

REPORT INFORMATION
  Report Type: Report from Study
  Country: US (occurrence: US)
  Receive Date: 20130214
  Receipt Date: 20130214
  Transmission Date: 20140127
  Serious: Yes (Life-Threatening, Hospitalization, Other)
  Sender: FDA-Public Use
  Company Number: US-ROCHE-1190094

PATIENT
  Sex: Female

DRUGS (2)
  1. ACTEMRA [Suspect]
     Indication: RHEUMATOID ARTHRITIS
     Dosage: MOST RECENT INFUSION PRIOR TO SAE:20/DEC/2012 AND 5/FEB/2023
     Route: 065
  2. EPINEPHRINE [Concomitant]
     Route: 042

REACTIONS (6)
  - Anaphylactic shock [Unknown]
  - Erythema [Unknown]
  - Pain in extremity [Unknown]
  - Oedema peripheral [Unknown]
  - Abdominal pain upper [Unknown]
  - Nasopharyngitis [Unknown]
